FAERS Safety Report 11015957 (Version 2)
Quarter: 2015Q2

REPORT INFORMATION
  Report Type: Spontaneous
  Country: US (occurrence: US)
  Receive Date: 20150412
  Receipt Date: 20150525
  Transmission Date: 20150821
  Serious: No
  Sender: FDA-Public Use
  Company Number: US-JNJFOC-20140204894

PATIENT
  Age: 59 Year
  Sex: Male
  Weight: 111.13 kg

DRUGS (1)
  1. SIMPONI [Suspect]
     Active Substance: GOLIMUMAB
     Indication: RHEUMATOID ARTHRITIS
     Route: 058

REACTIONS (4)
  - Drug dose omission [Unknown]
  - Needle issue [Unknown]
  - Medical device complication [Unknown]
  - Medical device complication [Unknown]

NARRATIVE: CASE EVENT DATE: 20140206
